FAERS Safety Report 4510301-4 (Version None)
Quarter: 2004Q4

REPORT INFORMATION
  Report Type: 
  Country: None (occurrence: None)
  Receive Date: 20041124
  Receipt Date: 20041115
  Transmission Date: 20050328
  Serious: Yes (Death)
  Sender: FDA-Public Use
  Company Number: JP-JNJFOC-20041103434

PATIENT
  Age: 84 Year
  Sex: Male

DRUGS (29)
  1. LEVOFLOXACIN [Suspect]
     Dates: start: 20041007, end: 20041019
  2. INSULIN [Concomitant]
     Route: 042
  3. INSULIN [Concomitant]
     Indication: DIABETES MELLITUS
     Route: 042
  4. METOPROLOL [Concomitant]
     Indication: HYPERTENSION
     Dosage: THIS DOSE WAS GIVEN ORALLY.
  5. METOPROLOL [Concomitant]
     Indication: TACHYCARDIA
     Dosage: THIS DOSE WAS GIVEN INTRAVENOUSLY.
  6. ACETAMINOPHEN [Concomitant]
     Indication: ANALGESIC THERAPY
     Route: 042
  7. PIRITRAMIDE [Concomitant]
     Indication: ANALGESIC THERAPY
     Route: 042
  8. OMEPRAZOLE [Concomitant]
     Indication: PROPHYLAXIS
     Route: 042
  9. MIDAZOLAM HCL [Concomitant]
     Indication: SEDATION
     Route: 042
  10. ENOXAPARIN [Concomitant]
     Indication: THROMBOSIS PROPHYLAXIS
     Route: 058
  11. MOXIFLOXACIN HCL [Concomitant]
     Route: 049
  12. TORSEMIDE [Concomitant]
     Route: 049
  13. TORSEMIDE [Concomitant]
     Route: 049
  14. FUROSEMIDE [Concomitant]
     Route: 042
  15. PHYSOSTIGMIN [Concomitant]
     Route: 042
  16. ETOMIDATE [Concomitant]
     Indication: ANAESTHESIA
     Route: 042
  17. PARAFFIN [Concomitant]
     Indication: CONSTIPATION
     Route: 049
  18. MACROGOL [Concomitant]
     Indication: CONSTIPATION
     Route: 049
  19. DIMETICONE [Concomitant]
     Route: 049
  20. ESOMEPRAZOLE [Concomitant]
     Indication: PROPHYLAXIS
     Route: 049
  21. NITROGLYCERIN [Concomitant]
     Indication: HYPOTENSION
     Route: 060
  22. RAMIPRIL [Concomitant]
     Indication: HYPERTENSION
     Route: 049
  23. GLYBURIDE [Concomitant]
     Indication: DIABETES MELLITUS
     Route: 049
  24. FLUCONAZOLE [Concomitant]
     Route: 049
  25. MIRTAZAPINE [Concomitant]
     Route: 049
  26. NYSTATIN [Concomitant]
     Route: 049
  27. METAMIZOLE [Concomitant]
     Route: 049
  28. GLIMEPIRIDE [Concomitant]
     Indication: DIABETES MELLITUS
     Route: 049
  29. LACTULOSE [Concomitant]
     Indication: PROPHYLAXIS
     Route: 049

REACTIONS (5)
  - CIRCULATORY COLLAPSE [None]
  - DEHYDRATION [None]
  - OLIGURIA [None]
  - SEPTIC SHOCK [None]
  - STAPHYLOCOCCAL SEPSIS [None]
